FAERS Safety Report 23516244 (Version 1)
Quarter: 2024Q1

REPORT INFORMATION
  Report Type: Spontaneous
  Country: US (occurrence: None)
  Receive Date: 20240213
  Receipt Date: 20240213
  Transmission Date: 20240409
  Serious: Yes (Hospitalization)
  Sender: FDA-Public Use
  Company Number: 2024A030561

PATIENT
  Age: 955 Month
  Sex: Female

DRUGS (1)
  1. FARXIGA [Suspect]
     Active Substance: DAPAGLIFLOZIN PROPANEDIOL
     Route: 048
     Dates: start: 20230620, end: 20230820

REACTIONS (12)
  - Mental disorder [Unknown]
  - Hospitalisation [Unknown]
  - Renal impairment [Unknown]
  - Victim of abuse [Unknown]
  - Bedridden [Unknown]
  - Hospice care [Not Recovered/Not Resolved]
  - Left-handedness [Not Recovered/Not Resolved]
  - Living in residential institution [Unknown]
  - Paranoia [Unknown]
  - Muscular weakness [Unknown]
  - Tooth erosion [Unknown]
  - Diabetes mellitus [Unknown]

NARRATIVE: CASE EVENT DATE: 20230801
